FAERS Safety Report 8174765-X (Version None)
Quarter: 2012Q1

REPORT INFORMATION
  Report Type: 
  Country: None (occurrence: None)
  Receive Date: 20120229
  Receipt Date: 20120215
  Transmission Date: 20120608
  Serious: Yes (Other)
  Sender: FDA-Public Use
  Company Number: PHEH2012US001446

PATIENT
  Sex: Female

DRUGS (3)
  1. MIACALCIN [Suspect]
     Indication: OSTEOPOROSIS
     Dosage: UNK
     Route: 045
  2. BUFFERIN [Concomitant]
     Indication: PAIN
  3. SUMYCIN [Suspect]
     Dosage: UNK

REACTIONS (3)
  - THROAT TIGHTNESS [None]
  - CONJUNCTIVAL HYPERAEMIA [None]
  - DYSPEPSIA [None]
